FAERS Safety Report 12544591 (Version 1)
Quarter: 2016Q3

REPORT INFORMATION
  Report Type: Spontaneous
  Country: US (occurrence: US)
  Receive Date: 20160711
  Receipt Date: 20160711
  Transmission Date: 20161109
  Serious: No
  Sender: FDA-Public Use
  Company Number: US-DSJP-DSU-2015-139461

PATIENT
  Sex: Female
  Weight: 100.23 kg

DRUGS (3)
  1. SLEEPING PILL [Concomitant]
     Indication: SLEEP DISORDER
     Dosage: UNK
  2. BENICAR HCT [Suspect]
     Active Substance: HYDROCHLOROTHIAZIDE\OLMESARTAN MEDOXOMIL
     Indication: HYPERTENSION
     Dosage: 40/12.5 MG, QD
     Route: 048
  3. THYROID MEDICINE [Concomitant]
     Active Substance: UNSPECIFIED INGREDIENT
     Indication: THYROID DISORDER
     Dosage: UNK

REACTIONS (2)
  - Weight decreased [Unknown]
  - Dehydration [Unknown]
